FAERS Safety Report 19934563 (Version 1)
Quarter: 2021Q4

REPORT INFORMATION
  Report Type: Spontaneous
  Country: CN (occurrence: CN)
  Receive Date: 20211008
  Receipt Date: 20211008
  Transmission Date: 20220303
  Serious: Yes (Death, Hospitalization, Other)
  Sender: FDA-Public Use
  Company Number: CN-GLAXOSMITHKLINE-CN2021APC202358

PATIENT
  Age: 28 Year
  Sex: Male
  Weight: 70 kg

DRUGS (8)
  1. LAMOTRIGINE [Suspect]
     Active Substance: LAMOTRIGINE
     Indication: Epilepsy
     Dosage: 50 MG, TID
     Route: 048
     Dates: start: 20200407, end: 20200507
  2. LEVETIRACETAM [Suspect]
     Active Substance: LEVETIRACETAM
     Indication: Epilepsy
     Dosage: 0.5 G, QD
     Dates: start: 201904
  3. TOPIRAMATE [Suspect]
     Active Substance: TOPIRAMATE
     Indication: Epilepsy
     Dosage: 25 MG, QD
     Route: 048
     Dates: start: 20200407, end: 20200507
  4. METHYLPREDNISOLONE [Suspect]
     Active Substance: METHYLPREDNISOLONE
     Indication: Inflammation
     Dosage: UNK
     Dates: start: 20200507
  5. METHYLPREDNISOLONE [Suspect]
     Active Substance: METHYLPREDNISOLONE
     Dosage: 120 MG, QD
     Route: 042
     Dates: start: 20200527
  6. LORATADINE [Suspect]
     Active Substance: LORATADINE
     Indication: Antiallergic therapy
     Dosage: UNK
     Dates: start: 20200507
  7. LORATADINE [Suspect]
     Active Substance: LORATADINE
     Dosage: 10 MG, QD
     Route: 048
     Dates: start: 20200507
  8. IMIPENEM [Suspect]
     Active Substance: IMIPENEM
     Indication: Anti-infective therapy
     Dosage: UNK
     Dates: start: 20200507

REACTIONS (31)
  - Gastrointestinal haemorrhage [Fatal]
  - Septic shock [Fatal]
  - Drug reaction with eosinophilia and systemic symptoms [Unknown]
  - Pyrexia [Unknown]
  - Cough [Unknown]
  - Erythema [Unknown]
  - Productive cough [Unknown]
  - Headache [Unknown]
  - Dizziness [Unknown]
  - Diarrhoea [Unknown]
  - Skin exfoliation [Unknown]
  - Sepsis [Unknown]
  - Liver injury [Unknown]
  - Pulmonary mass [Unknown]
  - Anal abscess [Unknown]
  - Haematemesis [Unknown]
  - Abdominal pain [Unknown]
  - Dyspnoea [Unknown]
  - Rales [Unknown]
  - Acinetobacter test positive [Unknown]
  - Faeces discoloured [Unknown]
  - Wheezing [Unknown]
  - Inflammation [Unknown]
  - Oedema [Unknown]
  - Multiple organ dysfunction syndrome [Unknown]
  - Respiratory disorder [Unknown]
  - Cardiovascular insufficiency [Unknown]
  - Condition aggravated [Unknown]
  - Anuria [Unknown]
  - Coma [Unknown]
  - Drug ineffective [Unknown]

NARRATIVE: CASE EVENT DATE: 20200527
